FAERS Safety Report 6107286-6 (Version None)
Quarter: 2009Q1

REPORT INFORMATION
  Report Type: 
  Country: None (occurrence: None)
  Receive Date: 20090309
  Receipt Date: 20090303
  Transmission Date: 20090719
  Serious: Yes (Hospitalization)
  Sender: FDA-Public Use
  Company Number: US-BAYER-200840965NA

PATIENT
  Age: 75 Year
  Sex: Female
  Weight: 73 kg

DRUGS (5)
  1. BETAPACE AF [Suspect]
     Indication: ATRIAL FIBRILLATION
     Dates: start: 20000101
  2. BETAPACE AF [Suspect]
     Dates: start: 20000101
  3. MAG-OX [Concomitant]
     Dosage: TOTAL DAILY DOSE: 800 MG  UNIT DOSE: 400 MG
     Dates: start: 20060101
  4. SYNTHROID [Concomitant]
     Dates: start: 19930101
  5. COUMADIN [Concomitant]
     Indication: THROMBOSIS PROPHYLAXIS
     Dosage: TOTAL DAILY DOSE: 5 MG
     Dates: start: 20080101

REACTIONS (4)
  - ARRHYTHMIA [None]
  - FALL [None]
  - LOSS OF CONSCIOUSNESS [None]
  - PAIN [None]
